FAERS Safety Report 20440946 (Version 1)
Quarter: 2022Q1

REPORT INFORMATION
  Report Type: Spontaneous
  Country: US (occurrence: US)
  Receive Date: 20220208
  Receipt Date: 20220208
  Transmission Date: 20220423
  Serious: No
  Sender: FDA-Public Use
  Company Number: US-AMGEN-USASP2022017071

PATIENT
  Age: 64 Year
  Sex: Male

DRUGS (1)
  1. KANJINTI [Suspect]
     Active Substance: TRASTUZUMAB-ANNS
     Indication: Oesophageal carcinoma
     Dosage: 315 MILLIGRAM
     Route: 065
     Dates: start: 20211006, end: 20220126

REACTIONS (3)
  - Pain [Unknown]
  - Cough [Unknown]
  - Fatigue [Unknown]
